FAERS Safety Report 5304611-0 (Version None)
Quarter: 2007Q2

REPORT INFORMATION
  Report Type: 
  Country: None (occurrence: None)
  Receive Date: 20070423
  Receipt Date: 20070417
  Transmission Date: 20071010
  Serious: Yes (Other)
  Sender: FDA-Public Use
  Company Number: JP-JPN-A200701463

PATIENT
  Age: 30 Year
  Sex: Female

DRUGS (5)
  1. RELENZA [Suspect]
     Indication: INFLUENZA
     Dosage: 10MG TWICE PER DAY
     Route: 055
     Dates: start: 20070310, end: 20070311
  2. MUCODYNE [Concomitant]
     Indication: INFLUENZA
     Route: 048
     Dates: start: 20070310, end: 20070311
  3. MEDICON [Concomitant]
     Indication: INFLUENZA
     Route: 048
     Dates: start: 20070310, end: 20070311
  4. CHINESE MEDICINE [Concomitant]
     Route: 048
  5. COCARL [Concomitant]
     Route: 048

REACTIONS (3)
  - DISORIENTATION [None]
  - DRUG EXPOSURE DURING PREGNANCY [None]
  - HALLUCINATION [None]
